FAERS Safety Report 12540067 (Version 1)
Quarter: 2016Q3

REPORT INFORMATION
  Report Type: Spontaneous
  Country: US (occurrence: None)
  Receive Date: 20160707
  Receipt Date: 20160707
  Transmission Date: 20161109
  Serious: Yes (Disabling, Other)
  Sender: FDA-Public Use
  Company Number: None

PATIENT
  Age: 59 Year
  Sex: Female
  Weight: 55.79 kg

DRUGS (6)
  1. BUDESONIDE. [Concomitant]
     Active Substance: BUDESONIDE
  2. CALCIUM [Concomitant]
     Active Substance: CALCIUM
  3. MULTI-VITAMIN [Concomitant]
     Active Substance: .ALPHA.-TOCOPHEROL ACETATE, DL-\ASCORBIC ACID\CYANOCOBALAMIN\FLUORIDE ION\FOLIC ACID\NIACIN\PYRIDOXINE\RIBOFLAVIN\THIAMINE\VITAMIN A\VITAMIN D
  4. CRESTOR [Suspect]
     Active Substance: ROSUVASTATIN CALCIUM
     Indication: BLOOD CHOLESTEROL INCREASED
     Route: 048
     Dates: start: 20150202, end: 20160519
  5. ANGELIQUE [Concomitant]
  6. FLUNISONIDE [Concomitant]

REACTIONS (29)
  - Dystonia [None]
  - Headache [None]
  - Back pain [None]
  - Breast pain [None]
  - Depression [None]
  - Quality of life decreased [None]
  - Fatigue [None]
  - Vitreous floaters [None]
  - Constipation [None]
  - Dyspnoea [None]
  - Night sweats [None]
  - Anxiety [None]
  - Gastrooesophageal reflux disease [None]
  - Spinal pain [None]
  - Myalgia [None]
  - Muscular weakness [None]
  - Tinnitus [None]
  - Muscle disorder [None]
  - Musculoskeletal pain [None]
  - Discomfort [None]
  - Disorientation [None]
  - Feeling abnormal [None]
  - Nausea [None]
  - Neck pain [None]
  - Confusional state [None]
  - Dysphonia [None]
  - Toothache [None]
  - Amnesia [None]
  - Pain in jaw [None]

NARRATIVE: CASE EVENT DATE: 20160503
